FAERS Safety Report 6313070-0 (Version None)
Quarter: 2009Q3

REPORT INFORMATION
  Report Type: 
  Country: None (occurrence: None)
  Receive Date: 20090818
  Receipt Date: 20090810
  Transmission Date: 20100115
  Serious: Yes (Other)
  Sender: FDA-Public Use
  Company Number: FR-ASTRAZENECA-2009SE07909

PATIENT
  Age: 27 Year
  Sex: Female

DRUGS (7)
  1. ROPIVACAINE HYDROCHLORIDE [Suspect]
     Indication: EPIDURAL ANAESTHESIA
     Dosage: 2 MG/ML
     Route: 008
  2. ROPIVACAINE HYDROCHLORIDE [Suspect]
     Dosage: 2 MG/ML
     Route: 008
  3. ROPIVACAINE HYDROCHLORIDE [Suspect]
     Dosage: 1 MG/ML
     Route: 008
  4. LIDOCAINE ADRENALINE 2% [Concomitant]
     Indication: EPIDURAL ANAESTHESIA
     Route: 008
  5. CIMETIDINE [Concomitant]
     Indication: PREMEDICATION
     Route: 048
  6. SUFENTANIL [Concomitant]
     Indication: EPIDURAL ANAESTHESIA
     Route: 008
  7. SUFENTANIL [Concomitant]
     Dosage: 0.16 UG/ML
     Route: 008

REACTIONS (2)
  - HYPOTENSION [None]
  - INCORRECT DRUG ADMINISTRATION RATE [None]
